FAERS Safety Report 19606801 (Version 5)
Quarter: 2022Q3

REPORT INFORMATION
  Report Type: Other
  Country: CA (occurrence: None)
  Receive Date: 20210725
  Receipt Date: 20220817
  Transmission Date: 20221027
  Serious: Yes (Hospitalization)
  Sender: FDA-Public Use
  Company Number: CA-ROCHE-2107697

PATIENT
  Age: 39 Year
  Sex: Female

DRUGS (13)
  1. OCREVUS [Suspect]
     Active Substance: OCRELIZUMAB
     Indication: Relapsing-remitting multiple sclerosis
     Dosage: FIRST INFUSION, 600MG IV EVERY 6 MONTH THEREAFTER
     Route: 042
     Dates: start: 20180412
  2. OCREVUS [Suspect]
     Active Substance: OCRELIZUMAB
     Dosage: 600MG IV EVERY 6 MONTH;300 MG AT DAY 0 AND 14, THEN 600 MG EVERY 6 MONTH
     Route: 042
     Dates: start: 20180426
  3. OCREVUS [Suspect]
     Active Substance: OCRELIZUMAB
     Route: 042
     Dates: start: 20190418
  4. ACETAMINOPHEN [Concomitant]
     Active Substance: ACETAMINOPHEN
     Indication: Premedication
     Route: 048
  5. BENADRYL [Concomitant]
     Active Substance: DIPHENHYDRAMINE HYDROCHLORIDE
     Indication: Premedication
     Route: 048
  6. METHYLPREDNISOLONE [Concomitant]
     Active Substance: METHYLPREDNISOLONE
     Indication: Premedication
     Route: 042
  7. RITALIN [Concomitant]
     Active Substance: METHYLPHENIDATE HYDROCHLORIDE
     Indication: Premedication
     Route: 048
  8. SAXENDA [Concomitant]
     Active Substance: LIRAGLUTIDE
     Indication: Weight decreased
     Route: 058
     Dates: start: 201808
  9. CYMBALTA [Concomitant]
     Active Substance: DULOXETINE HYDROCHLORIDE
  10. OZEMPIC [Concomitant]
     Active Substance: SEMAGLUTIDE
     Indication: Weight decreased
     Dates: start: 201901
  11. BACLOFEN [Concomitant]
     Active Substance: BACLOFEN
  12. IRON [Concomitant]
     Active Substance: IRON
  13. COVID-19 VACCINE NOS [Concomitant]
     Active Substance: COVID-19 VACCINE NOS
     Dosage: TOOK 2 DOSES OF VACCINE
     Dates: start: 202103

REACTIONS (20)
  - Infusion related reaction [Recovering/Resolving]
  - Nasal congestion [Unknown]
  - Eye pruritus [Unknown]
  - Drug ineffective [Unknown]
  - Fatigue [Recovered/Resolved]
  - Infusion related reaction [Recovered/Resolved]
  - Urinary tract infection [Not Recovered/Not Resolved]
  - Stress [Unknown]
  - Decreased immune responsiveness [Not Recovered/Not Resolved]
  - COVID-19 [Recovered/Resolved]
  - Viral test positive [Not Recovered/Not Resolved]
  - Nausea [Recovered/Resolved]
  - Diarrhoea [Recovered/Resolved]
  - Hypokalaemia [Recovered/Resolved]
  - Hypophosphataemia [Recovered/Resolved]
  - Anaemia [Recovered/Resolved]
  - Pyrexia [Recovered/Resolved]
  - Nasopharyngitis [Recovered/Resolved]
  - Hyperhidrosis [Recovered/Resolved]
  - Dizziness [Recovered/Resolved]

NARRATIVE: CASE EVENT DATE: 20180412
